FAERS Safety Report 5192142-0 (Version None)
Quarter: 2006Q4

REPORT INFORMATION
  Report Type: 
  Country: None (occurrence: None)
  Receive Date: 20061220
  Receipt Date: 20061204
  Transmission Date: 20070319
  Serious: Yes (Hospitalization)
  Sender: FDA-Public Use
  Company Number: 2006BL006659

PATIENT
  Age: 12 Year
  Sex: Female

DRUGS (2)
  1. GENTAMICIN SULFATE [Suspect]
     Dosage: INTRAVENOUS
     Route: 042
  2. CEFTAZIDIME [Suspect]
     Dosage: INTRAVENOUS
     Route: 042

REACTIONS (5)
  - CONDITION AGGRAVATED [None]
  - LUNG DISORDER [None]
  - LUNG TRANSPLANT [None]
  - PERITONEAL DIALYSIS [None]
  - RENAL FAILURE ACUTE [None]
